FAERS Safety Report 20145161 (Version 1)
Quarter: 2021Q4

REPORT INFORMATION
  Report Type: Spontaneous
  Country: VN (occurrence: None)
  Receive Date: 20211203
  Receipt Date: 20211203
  Transmission Date: 20220304
  Serious: Yes (Other)
  Sender: FDA-Public Use
  Company Number: 2021A850757

PATIENT

DRUGS (2)
  1. IRESSA [Suspect]
     Active Substance: GEFITINIB
     Indication: Lung neoplasm malignant
     Route: 048
  2. IRESSA [Suspect]
     Active Substance: GEFITINIB
     Indication: EGFR gene mutation
     Route: 048

REACTIONS (4)
  - Malignant neoplasm progression [Unknown]
  - Bone pain [Unknown]
  - Rash [Unknown]
  - Acne [Unknown]
